FAERS Safety Report 6552556-0 (Version None)
Quarter: 2010Q1

REPORT INFORMATION
  Report Type: 
  Country: None (occurrence: None)
  Receive Date: 20100121
  Receipt Date: 20100106
  Transmission Date: 20100710
  Serious: Yes (Other)
  Sender: FDA-Public Use
  Company Number: US-1180316

PATIENT
  Sex: Male

DRUGS (8)
  1. BAS OPHTHALMIC SOLUTION [Suspect]
     Indication: INTRAOCULAR LENS IMPLANT
     Dosage: (500 ML INTRAOCULAR), (15 ML INTRAOCULAR)
     Route: 031
     Dates: start: 20091217, end: 20091217
  2. BAS OPHTHALMIC SOLUTION [Suspect]
     Indication: INTRAOCULAR LENS IMPLANT
     Dosage: (500 ML INTRAOCULAR), (15 ML INTRAOCULAR)
     Route: 031
     Dates: start: 20091217, end: 20091217
  3. VIGAMOX [Concomitant]
  4. OMNIPRED [Concomitant]
  5. VANCOMYCIN [Concomitant]
  6. CEFTAZIDIME [Concomitant]
  7. VISCOAT [Concomitant]
  8. PROVISC [Concomitant]

REACTIONS (2)
  - POST PROCEDURAL COMPLICATION [None]
  - TOXIC ANTERIOR SEGMENT SYNDROME [None]
